FAERS Safety Report 23215959 (Version 1)
Quarter: 2023Q4

REPORT INFORMATION
  Report Type: Spontaneous
  Country: ES (occurrence: ES)
  Receive Date: 20231122
  Receipt Date: 20231122
  Transmission Date: 20240109
  Serious: No
  Sender: FDA-Public Use
  Company Number: ES-ALKEM LABORATORIES LIMITED-ES-ALKEM-2022-14572

PATIENT
  Age: 57 Year
  Sex: Female

DRUGS (4)
  1. ISONIAZID [Suspect]
     Active Substance: ISONIAZID
     Indication: Cutaneous tuberculosis
     Dosage: UNK
     Route: 065
     Dates: start: 202105
  2. ETHAMBUTOL HYDROCHLORIDE [Suspect]
     Active Substance: ETHAMBUTOL HYDROCHLORIDE
     Indication: Cutaneous tuberculosis
     Dosage: UNK
     Route: 065
     Dates: start: 202105
  3. PYRAZINAMIDE [Suspect]
     Active Substance: PYRAZINAMIDE
     Indication: Cutaneous tuberculosis
     Dosage: UNK
     Route: 065
     Dates: start: 202105
  4. RIFAMPIN [Suspect]
     Active Substance: RIFAMPIN
     Indication: Cutaneous tuberculosis
     Dosage: UNK
     Route: 065
     Dates: start: 202105

REACTIONS (7)
  - Liver function test increased [Unknown]
  - Asthenia [Unknown]
  - Nausea [Unknown]
  - Vomiting [Unknown]
  - Arthralgia [Unknown]
  - Skin lesion [Unknown]
  - Drug intolerance [Unknown]
